FAERS Safety Report 11939979 (Version 1)
Quarter: 2016Q1

REPORT INFORMATION
  Report Type: Spontaneous
  Country: RS (occurrence: RS)
  Receive Date: 20160122
  Receipt Date: 20160122
  Transmission Date: 20160526
  Serious: Yes (Other)
  Sender: FDA-Public Use
  Company Number: RS-ACTAVIS-2016-00766

PATIENT
  Age: 26 Year
  Sex: Male

DRUGS (1)
  1. BETAMETHASONE DIPROPIONATE (AMALLC) [Suspect]
     Active Substance: BETAMETHASONE DIPROPIONATE
     Indication: ECZEMA
     Dosage: UNKNOWN
     Route: 061

REACTIONS (2)
  - Trichophytic granuloma [Recovered/Resolved with Sequelae]
  - Wrong drug administered [Unknown]
